FAERS Safety Report 23313999 (Version 6)
Quarter: 2024Q3

REPORT INFORMATION
  Report Type: Report from Study
  Country: US (occurrence: US)
  Receive Date: 20231219
  Receipt Date: 20240923
  Transmission Date: 20241017
  Serious: No
  Sender: LUNDBECK
  Company Number: US-LUNDBECK-DKLU3070291

PATIENT

DRUGS (8)
  1. VYEPTI [Suspect]
     Active Substance: EPTINEZUMAB-JJMR
     Indication: Migraine
     Dosage: 100 MILLIGRAM
     Route: 041
     Dates: start: 20231102
  2. QULIPTA [Concomitant]
     Active Substance: ATOGEPANT
     Indication: Migraine
  3. QULIPTA [Concomitant]
     Active Substance: ATOGEPANT
  4. CYCLOBENZAPRINE HYDROCHLORIDE [Concomitant]
     Active Substance: CYCLOBENZAPRINE HYDROCHLORIDE
     Indication: Product used for unknown indication
     Route: 048
  5. KETOROLAC TROMETHAMINE [Concomitant]
     Active Substance: KETOROLAC TROMETHAMINE
     Route: 030
  6. NAPROXEN [Concomitant]
     Active Substance: NAPROXEN
     Route: 048
  7. PRIMIDONE [Concomitant]
     Active Substance: PRIMIDONE
     Route: 048
  8. VERAPAMIL HCL [Concomitant]
     Active Substance: VERAPAMIL HYDROCHLORIDE
     Route: 048

REACTIONS (3)
  - Blepharospasm [Unknown]
  - Therapeutic response shortened [Unknown]
  - Therapeutic response decreased [Unknown]
